FAERS Safety Report 7650475-X (Version None)
Quarter: 2011Q3

REPORT INFORMATION
  Report Type: 
  Country: None (occurrence: None)
  Receive Date: 20110802
  Receipt Date: 20110729
  Transmission Date: 20111222
  Serious: Yes (Hospitalization)
  Sender: FDA-Public Use
  Company Number: US-GLAXOSMITHKLINE-A0923020A

PATIENT
  Age: 49 Year
  Sex: Male

DRUGS (1)
  1. AVANDIA [Suspect]
     Indication: DIABETES MELLITUS
     Dosage: 4MG TWICE PER DAY
     Route: 048
     Dates: start: 20041122, end: 20070601

REACTIONS (4)
  - CARDIOVASCULAR DISORDER [None]
  - CORONARY ARTERIAL STENT INSERTION [None]
  - MYOCARDIAL INFARCTION [None]
  - CONDITION AGGRAVATED [None]
